FAERS Safety Report 19795876 (Version 1)
Quarter: 2021Q3

REPORT INFORMATION
  Report Type: Spontaneous
  Country: US (occurrence: US)
  Receive Date: 20210904
  Receipt Date: 20210904
  Transmission Date: 20211014
  Serious: No
  Sender: FDA-Public Use
  Company Number: None

PATIENT
  Age: 41 Year
  Sex: Female
  Weight: 81 kg

DRUGS (6)
  1. FLUOXETINE [Concomitant]
     Active Substance: FLUOXETINE HYDROCHLORIDE
  2. ELURYNG [Suspect]
     Active Substance: ETHINYL ESTRADIOL\ETONOGESTREL
     Indication: CONTRACEPTION
     Dosage: ?          QUANTITY:1 IMPLANT;OTHER FREQUENCY:ONCE MONTHLY;?
     Route: 067
     Dates: start: 20210901, end: 20210904
  3. ELURYNG [Suspect]
     Active Substance: ETHINYL ESTRADIOL\ETONOGESTREL
     Indication: PREMENSTRUAL SYNDROME
     Dosage: ?          QUANTITY:1 IMPLANT;OTHER FREQUENCY:ONCE MONTHLY;?
     Route: 067
     Dates: start: 20210901, end: 20210904
  4. ELURYNG [Suspect]
     Active Substance: ETHINYL ESTRADIOL\ETONOGESTREL
     Indication: HEAVY MENSTRUAL BLEEDING
     Dosage: ?          QUANTITY:1 IMPLANT;OTHER FREQUENCY:ONCE MONTHLY;?
     Route: 067
     Dates: start: 20210901, end: 20210904
  5. PRAZOSIN. [Concomitant]
     Active Substance: PRAZOSIN
  6. TRAZODONE [Concomitant]
     Active Substance: TRAZODONE HYDROCHLORIDE

REACTIONS (8)
  - Negative thoughts [None]
  - Anger [None]
  - Crying [None]
  - Feeling abnormal [None]
  - Asthenia [None]
  - Depression [None]
  - Apathy [None]
  - Irritability [None]

NARRATIVE: CASE EVENT DATE: 20210904
